FAERS Safety Report 4687859-8 (Version None)
Quarter: 2005Q2

REPORT INFORMATION
  Report Type: 
  Country: None (occurrence: None)
  Receive Date: 20050610
  Receipt Date: 20050304
  Transmission Date: 20051028
  Serious: Yes (Hospitalization)
  Sender: FDA-Public Use
  Company Number: US-ABBOTT-05P-163-0292987-00

PATIENT
  Age: 57 Year
  Sex: Female

DRUGS (5)
  1. CYLERT [Suspect]
     Indication: FATIGUE
     Dates: start: 20040521, end: 20041218
  2. INTERFERON BETA [Suspect]
     Indication: DRUG USE FOR UNKNOWN INDICATION
  3. BUCINDOLOL HYDROCHLORIDE [Suspect]
     Indication: DRUG USE FOR UNKNOWN INDICATION
  4. ACETAMINOPHEN [Suspect]
     Indication: DRUG USE FOR UNKNOWN INDICATION
  5. PAROXETINE HYDROCHLORIDE [Concomitant]
     Indication: DRUG USE FOR UNKNOWN INDICATION

REACTIONS (2)
  - HEPATITIS TOXIC [None]
  - JAUNDICE [None]
